FAERS Safety Report 19165476 (Version 2)
Quarter: 2021Q2

REPORT INFORMATION
  Report Type: Spontaneous
  Country: AU (occurrence: AU)
  Receive Date: 20210421
  Receipt Date: 20210629
  Transmission Date: 20210717
  Serious: Yes (Other)
  Sender: FDA-Public Use
  Company Number: AU-BAUSCH-BL-2021-012738

PATIENT
  Age: 18 Year
  Sex: Male

DRUGS (5)
  1. ACICLOVIR [Suspect]
     Active Substance: ACYCLOVIR
     Indication: PRODUCT USED FOR UNKNOWN INDICATION
     Route: 065
  2. PREDNISOLONE. [Suspect]
     Active Substance: PREDNISOLONE
     Indication: PRODUCT USED FOR UNKNOWN INDICATION
     Route: 065
  3. GANCICLOVIR. [Suspect]
     Active Substance: GANCICLOVIR
     Indication: PRODUCT USED FOR UNKNOWN INDICATION
     Route: 065
  4. VALGANCICLOVIR. [Suspect]
     Active Substance: VALGANCICLOVIR
     Indication: PRODUCT USED FOR UNKNOWN INDICATION
     Route: 065
  5. MYCOPHENOLATE MOFETIL. [Suspect]
     Active Substance: MYCOPHENOLATE MOFETIL
     Indication: PRODUCT USED FOR UNKNOWN INDICATION
     Route: 065

REACTIONS (12)
  - Large intestinal ulcer [Unknown]
  - Pathogen resistance [Unknown]
  - Abdominal pain [Unknown]
  - Viral load increased [Unknown]
  - Drug resistance [Unknown]
  - Cytomegalovirus viraemia [Unknown]
  - Diarrhoea haemorrhagic [Unknown]
  - Transplant rejection [Unknown]
  - Pyrexia [Unknown]
  - Acute kidney injury [Unknown]
  - Cytomegalovirus colitis [Unknown]
  - Cytomegalovirus infection reactivation [Unknown]
